FAERS Safety Report 20140837 (Version 1)
Quarter: 2021Q4

REPORT INFORMATION
  Report Type: Spontaneous
  Country: US (occurrence: US)
  Receive Date: 20211202
  Receipt Date: 20211202
  Transmission Date: 20220304
  Serious: Yes (Hospitalization)
  Sender: FDA-Public Use
  Company Number: US-NOVARTISPH-NVSC2021US271324

PATIENT
  Age: 5 Year
  Sex: Male
  Weight: 20 kg

DRUGS (4)
  1. KYMRIAH [Suspect]
     Active Substance: TISAGENLECLEUCEL
     Indication: Acute lymphocytic leukaemia
     Dosage: UNK UNK, ONCE/SINGLE
     Route: 042
     Dates: start: 20211026, end: 20211026
  2. CEFEPIME [Concomitant]
     Active Substance: CEFEPIME HYDROCHLORIDE
     Indication: Neutropenia
     Dosage: 50 MG/KG, Q8H
     Route: 042
     Dates: start: 20211027
  3. VANCOMYCIN [Concomitant]
     Active Substance: VANCOMYCIN
     Indication: Neutropenia
     Dosage: 15 MG/KG, Q8H
     Route: 042
     Dates: start: 20211027, end: 20211101
  4. KEPPRA [Concomitant]
     Active Substance: LEVETIRACETAM
     Indication: Prophylaxis
     Dosage: 10 MG/KG, Q12H
     Route: 042
     Dates: start: 20211101, end: 20211115

REACTIONS (6)
  - Immune effector cell-associated neurotoxicity syndrome [Recovered/Resolved]
  - Cytokine release syndrome [Recovered/Resolved]
  - Pyrexia [Recovered/Resolved]
  - Pyrexia [Unknown]
  - Hypotension [Unknown]
  - Tumour marker abnormal [Recovering/Resolving]

NARRATIVE: CASE EVENT DATE: 20211027
